FAERS Safety Report 18099421 (Version 3)
Quarter: 2020Q4

REPORT INFORMATION
  Report Type: Spontaneous
  Country: CZ (occurrence: CZ)
  Receive Date: 20200731
  Receipt Date: 20201110
  Transmission Date: 20210113
  Serious: Yes (Death, Hospitalization, Other)
  Sender: FDA-Public Use
  Company Number: CZ-SA-2020SA199327

PATIENT

DRUGS (2)
  1. ELOCTA [Suspect]
     Active Substance: EFMOROCTOCOG ALFA
     Indication: FACTOR VIII DEFICIENCY
     Dosage: 1500 IU, BIW
     Route: 042
     Dates: start: 202001, end: 20200715
  2. ELOCTA [Suspect]
     Active Substance: EFMOROCTOCOG ALFA
     Indication: FACTOR VIII DEFICIENCY
     Dosage: 1500 IU, BIW
     Route: 042
     Dates: start: 202001, end: 20200715

REACTIONS (5)
  - Arthralgia [Unknown]
  - Gastrointestinal haemorrhage [Recovered/Resolved]
  - Haemoglobin decreased [Recovered/Resolved]
  - Ventricular arrhythmia [Fatal]
  - Drug abuse [Unknown]

NARRATIVE: CASE EVENT DATE: 20200714
